FAERS Safety Report 13916653 (Version 1)
Quarter: 2017Q3

REPORT INFORMATION
  Report Type: Spontaneous
  Country: JP (occurrence: JP)
  Receive Date: 20170829
  Receipt Date: 20170829
  Transmission Date: 20171127
  Serious: Yes (Hospitalization)
  Sender: FDA-Public Use
  Company Number: JP-BAYER-2017-099413

PATIENT
  Age: 72 Year
  Sex: Male
  Weight: 57 kg

DRUGS (11)
  1. ZYTIGA [Concomitant]
     Active Substance: ABIRATERONE ACETATE
     Indication: HORMONE-REFRACTORY PROSTATE CANCER
     Dosage: DAILY DOSE 1000 MG
     Route: 048
  2. DUROTEP [Concomitant]
     Active Substance: FENTANYL
     Indication: PAIN
     Dosage: 4.2 MG, TID
     Route: 061
  3. XOFIGO [Suspect]
     Active Substance: RADIUM RA-223 DICHLORIDE
     Indication: PROSTATE CANCER STAGE IV
     Dosage: 55 KBQ/KG
     Route: 042
     Dates: start: 20170209, end: 20170209
  4. XOFIGO [Suspect]
     Active Substance: RADIUM RA-223 DICHLORIDE
     Indication: PROSTATE CANCER STAGE IV
     Dosage: 55 KBQ/KG
     Route: 042
     Dates: start: 20170406, end: 20170406
  5. OSTELUC [Concomitant]
     Active Substance: ETODOLAC
     Indication: BACK PAIN
     Dosage: DAILY DOSE 400 MG
     Route: 048
  6. XOFIGO [Suspect]
     Active Substance: RADIUM RA-223 DICHLORIDE
     Indication: METASTASES TO BONE
     Dosage: 55 KBQ/KGUNK
     Route: 042
     Dates: start: 20170113, end: 20170113
  7. SUPER CAL600-MG300 [Concomitant]
     Indication: PROPHYLAXIS
     Dosage: UNK
     Route: 048
  8. TAKEPRON [Concomitant]
     Active Substance: LANSOPRAZOLE
     Indication: GASTRIC ULCER
     Dosage: DDAILY DOSE 15 MG
     Route: 048
  9. XOFIGO [Suspect]
     Active Substance: RADIUM RA-223 DICHLORIDE
     Indication: PROSTATE CANCER STAGE IV
     Dosage: 55 KBQ/KG
     Route: 042
     Dates: start: 20161208, end: 20161208
  10. XOFIGO [Suspect]
     Active Substance: RADIUM RA-223 DICHLORIDE
     Indication: PROSTATE CANCER STAGE IV
     Dosage: 55 KBQ/KG
     Route: 042
     Dates: start: 20170511, end: 20170511
  11. DECADRON [Concomitant]
     Active Substance: DEXAMETHASONE
     Indication: HORMONE-REFRACTORY PROSTATE CANCER
     Dosage: DAILY DOSE 1 MG
     Route: 048

REACTIONS (3)
  - Pancreatitis acute [Recovered/Resolved]
  - White blood cell count decreased [Recovered/Resolved]
  - Anaemia [Not Recovered/Not Resolved]

NARRATIVE: CASE EVENT DATE: 20161226
